FAERS Safety Report 4302529-3 (Version None)
Quarter: 2004Q1

REPORT INFORMATION
  Report Type: 
  Country: None (occurrence: None)
  Receive Date: 20040223
  Receipt Date: 20040223
  Transmission Date: 20041129
  Serious: Yes (Life-Threatening)
  Sender: FDA-Public Use
  Company Number: None

PATIENT
  Age: 50 Year
  Sex: Female

DRUGS (1)
  1. FERRLECIT [Suspect]
     Indication: BLOOD IRON DECREASED
     Dosage: 500 MG IVPB Q12 HOURS; 1 DOSE ONLY
     Dates: start: 20040211

REACTIONS (7)
  - ARTHRALGIA [None]
  - BURNING SENSATION [None]
  - CARDIAC ARREST [None]
  - DYSPNOEA [None]
  - ERYTHEMA [None]
  - HYPOTENSION [None]
  - SWELLING [None]
